FAERS Safety Report 6098551-X (Version None)
Quarter: 2009Q1

REPORT INFORMATION
  Report Type: 
  Country: None (occurrence: None)
  Receive Date: 20090302
  Receipt Date: 20090224
  Transmission Date: 20090719
  Serious: Yes (Other)
  Sender: FDA-Public Use
  Company Number: DE-BIOGENIDEC-2009BI001904

PATIENT
  Age: 28 Year
  Sex: Female
  Weight: 70 kg

DRUGS (3)
  1. TYSABRI [Suspect]
     Indication: RELAPSING-REMITTING MULTIPLE SCLEROSIS
     Route: 042
     Dates: start: 20090116, end: 20090116
  2. TYSABRI [Suspect]
     Route: 042
     Dates: start: 20081119, end: 20081219
  3. PREGABALIN [Concomitant]
     Indication: NEURALGIA
     Route: 048
     Dates: start: 20081101

REACTIONS (2)
  - DERMATITIS ALLERGIC [None]
  - HAEMATOMA [None]
